FAERS Safety Report 8589215-9 (Version None)
Quarter: 2012Q3

REPORT INFORMATION
  Report Type: 
  Country: None (occurrence: None)
  Receive Date: 20120813
  Receipt Date: 20120806
  Transmission Date: 20120928
  Serious: Yes (Death)
  Sender: FDA-Public Use
  Company Number: DE-JNJFOC-20120516526

PATIENT
  Sex: Female
  Weight: 54 kg

DRUGS (11)
  1. AVASTIN [Concomitant]
     Route: 042
  2. TRABECTEDIN [Suspect]
     Indication: OVARIAN CANCER RECURRENT
     Dosage: CYCLE 2 ON DAY 1 (TOTAL DOSE ADMINISTERED, 1.8 MG), IN 500 ML NACL (3 HOUR)
     Route: 042
     Dates: start: 20120417
  3. TRABECTEDIN [Suspect]
     Dosage: CYCLE 1
     Route: 042
     Dates: start: 20120327
  4. GRANISETRON [Concomitant]
     Dosage: ON DAY 1
     Route: 042
     Dates: start: 20120508
  5. DEXAMETHASONE SODIUM PHOSPHATE [Concomitant]
     Dosage: ON DAY 1
     Route: 042
     Dates: start: 20120508
  6. GEMZAR [Concomitant]
     Route: 065
     Dates: start: 20111011
  7. NEULASTA [Concomitant]
     Dosage: CYCLE 3
     Route: 065
     Dates: start: 20120508
  8. DOXORUBICIN HCL [Concomitant]
     Indication: OVARIAN CANCER RECURRENT
     Dosage: ON DAY 1, INTRAVENOUS SLOWLY
     Route: 042
  9. DOXORUBICIN HCL [Concomitant]
     Dosage: 2ND CYCLE
     Route: 042
     Dates: start: 20120417
  10. HYCAMTIN [Concomitant]
     Route: 065
     Dates: start: 20111011
  11. AVASTIN [Concomitant]
     Indication: OVARIAN CANCER RECURRENT
     Dosage: 500 MG
     Route: 042
     Dates: start: 20111213, end: 20120417

REACTIONS (1)
  - BONE MARROW FAILURE [None]
